FAERS Safety Report 4596419-9 (Version None)
Quarter: 2005Q1

REPORT INFORMATION
  Report Type: 
  Country: None (occurrence: None)
  Receive Date: 20050228
  Receipt Date: 20050218
  Transmission Date: 20050727
  Serious: Yes (Death)
  Sender: FDA-Public Use
  Company Number: 163-20785-04120131

PATIENT
  Age: 85 Year
  Sex: Female

DRUGS (1)
  1. THALOMID [Suspect]
     Indication: MYELODYSPLASTIC SYNDROME
     Dosage: 50 MG, QHS, ORAL
     Route: 048
     Dates: start: 20040924, end: 20041006

REACTIONS (5)
  - ARTHROPOD BITE [None]
  - HIP FRACTURE [None]
  - PNEUMONIA ASPIRATION [None]
  - POST PROCEDURAL COMPLICATION [None]
  - RASH [None]
